FAERS Safety Report 25207524 (Version 1)
Quarter: 2025Q2

REPORT INFORMATION
  Report Type: Report from Study
  Country: CA (occurrence: CA)
  Receive Date: 20250417
  Receipt Date: 20250417
  Transmission Date: 20250717
  Serious: Yes (Other)
  Sender: ABBVIE
  Company Number: CA-ABBVIE-6225861

PATIENT
  Age: 76 Year
  Sex: Male

DRUGS (1)
  1. SKYRIZI [Suspect]
     Active Substance: RISANKIZUMAB-RZAA
     Indication: Psoriasis
     Dosage: FROM STRENGTH 150 MILLIGRAM,
     Route: 058
     Dates: start: 20220315

REACTIONS (1)
  - Skin disorder [Unknown]

NARRATIVE: CASE EVENT DATE: 20250409
